FAERS Safety Report 4766529-1 (Version None)
Quarter: 2005Q3

REPORT INFORMATION
  Report Type: 
  Country: None (occurrence: None)
  Receive Date: 20050909
  Receipt Date: 20050829
  Transmission Date: 20060218
  Serious: Yes (Death, Other)
  Sender: FDA-Public Use
  Company Number: 2005JP001349

PATIENT
  Age: 63 Year
  Sex: Female

DRUGS (10)
  1. FUNGUARD (MICAFUNGIN) INJECTION [Suspect]
     Indication: PNEUMONIA
     Dosage: SEE IMAGE
     Route: 041
     Dates: start: 20050609, end: 20050609
  2. FUNGUARD (MICAFUNGIN) INJECTION [Suspect]
     Indication: PNEUMONIA
     Dosage: SEE IMAGE
     Route: 041
     Dates: start: 20050610, end: 20050610
  3. FUNGUARD (MICAFUNGIN) INJECTION [Suspect]
     Indication: PNEUMONIA
     Dosage: SEE IMAGE
     Route: 041
     Dates: start: 20050611, end: 20050617
  4. FUNGUARD (MICAFUNGIN) INJECTION [Suspect]
     Indication: PNEUMONIA
     Dosage: SEE IMAGE
     Route: 041
     Dates: start: 20050618, end: 20050627
  5. FUNGUARD (MICAFUNGIN) INJECTION [Suspect]
     Indication: PNEUMONIA
     Dosage: SEE IMAGE
     Route: 041
     Dates: start: 20050628, end: 20050629
  6. FLANOS (FLUCONAZOLE) INJECTION [Concomitant]
  7. MEROPENEM (MEROPENEM) INJECTION [Concomitant]
  8. VENOGLOBULIN (IMMUNOGLOBULIN HUMAN NORMAL) INJECTION [Concomitant]
  9. SOLU-CORTEF (HYDROCORTISONE SODIUM SUCCINATE) INJECTION [Concomitant]
  10. EXACIN (ISEPAMICIN SULFATE) INJECTION [Concomitant]

REACTIONS (2)
  - HYPERBILIRUBINAEMIA [None]
  - SEPSIS [None]
